FAERS Safety Report 15664274 (Version 1)
Quarter: 2018Q4

REPORT INFORMATION
  Report Type: Spontaneous
  Country: US (occurrence: US)
  Receive Date: 20181127
  Receipt Date: 20181127
  Transmission Date: 20190205
  Serious: Yes (Other)
  Sender: FDA-Public Use
  Company Number: None

PATIENT
  Age: 24 Year
  Sex: Female
  Weight: 105 kg

DRUGS (1)
  1. FERAHEME [Suspect]
     Active Substance: FERUMOXYTOL NON-STOICHIOMETRIC MAGNETITE
     Indication: IRON DEFICIENCY ANAEMIA
     Dosage: ?          OTHER FREQUENCY:ONCE;?
     Route: 041
     Dates: start: 20181127, end: 20181127

REACTIONS (4)
  - Chest pain [None]
  - Back pain [None]
  - Dyspnoea [None]
  - Maternal exposure during pregnancy [None]

NARRATIVE: CASE EVENT DATE: 20181127
